FAERS Safety Report 4681060-X (Version None)
Quarter: 2005Q2

REPORT INFORMATION
  Report Type: 
  Country: None (occurrence: None)
  Receive Date: 20050603
  Receipt Date: 20050526
  Transmission Date: 20051028
  Serious: Yes (Other)
  Sender: FDA-Public Use
  Company Number: US-ABBOTT-05P-163-0301964-00

PATIENT
  Age: 70 Year
  Sex: Female
  Weight: 50 kg

DRUGS (10)
  1. NIMBEX [Suspect]
     Indication: NEUROMUSCULAR BLOCKADE
     Dosage: 8 MG (0.16 MG/KG) RAPIDLY INFUSED INTRAVENOUS DOSE
  2. ASPIRIN [Concomitant]
     Indication: DRUG USE FOR UNKNOWN INDICATION
     Dosage: NOT REPORTED
  3. MIDAZOLAM [Concomitant]
     Indication: PREMEDICATION
     Route: 042
  4. CEFAZOLIN [Concomitant]
     Indication: PREMEDICATION
     Route: 042
  5. PROPOFOL [Concomitant]
     Indication: INDUCTION OF ANAESTHESIA
     Route: 042
  6. SUCCINYLCHOLINE [Concomitant]
     Indication: INDUCTION OF ANAESTHESIA
     Route: 042
  7. FENTANYL [Concomitant]
     Indication: INDUCTION OF ANAESTHESIA
     Route: 042
  8. ISOFLURANE [Concomitant]
     Indication: MAINTENANCE OF ANAESTHESIA
     Dosage: NOT REPORTED
  9. NITROUS OXIDE [Concomitant]
     Indication: MAINTENANCE OF ANAESTHESIA
     Dosage: NOT REPORTED
  10. OXYGEN [Concomitant]
     Indication: MAINTENANCE OF ANAESTHESIA
     Dosage: NOT REPORTED, NOT REPORTED

REACTIONS (6)
  - ANAPHYLACTIC REACTION [None]
  - BREATH SOUNDS DECREASED [None]
  - ELECTROCARDIOGRAM ST-T SEGMENT DEPRESSION [None]
  - OXYGEN SATURATION DECREASED [None]
  - SINUS BRADYCARDIA [None]
  - SINUS TACHYCARDIA [None]
